FAERS Safety Report 24624128 (Version 1)
Quarter: 2024Q4

REPORT INFORMATION
  Report Type: Spontaneous
  Country: US (occurrence: None)
  Receive Date: 20241114
  Receipt Date: 20241114
  Transmission Date: 20250114
  Serious: Yes (Hospitalization)
  Sender: Public
  Company Number: None

PATIENT
  Age: 74 Year
  Sex: Female

DRUGS (16)
  1. JAKAFI [Suspect]
     Active Substance: RUXOLITINIB
     Dosage: FREQUENCY : TWICE A DAY;?
     Route: 048
     Dates: start: 20210527
  2. ALLOPURINOL [Concomitant]
     Active Substance: ALLOPURINOL
  3. CEPHALEXIN [Concomitant]
     Active Substance: CEPHALEXIN
  4. DILTIAZEM [Concomitant]
     Active Substance: DILTIAZEM
  5. ELIQUIS [Concomitant]
     Active Substance: APIXABAN
  6. ENALAPRIL [Concomitant]
     Active Substance: ENALAPRIL
  7. FOLIC ACID [Concomitant]
     Active Substance: FOLIC ACID
  8. FUROSEMIDE [Concomitant]
     Active Substance: FUROSEMIDE
  9. HYDROCHLOROTHIAZIDE [Concomitant]
     Active Substance: HYDROCHLOROTHIAZIDE
  10. LEVOTHYROXINE [Concomitant]
     Active Substance: LEVOTHYROXINE
  11. METOPROLOL [Concomitant]
     Active Substance: METOPROLOL
  12. POTASSIUM [Concomitant]
     Active Substance: POTASSIUM
  13. TYLENOL [Concomitant]
     Active Substance: ACETAMINOPHEN
  14. VITAMIN C [Concomitant]
     Active Substance: ASCORBIC ACID
  15. VITAMIN D3 [Concomitant]
     Active Substance: CHOLECALCIFEROL
  16. TRIAMCINOLONE DENTAL [Concomitant]

REACTIONS (1)
  - Hospitalisation [None]

NARRATIVE: CASE EVENT DATE: 20241114
